FAERS Safety Report 6033282-3 (Version None)
Quarter: 2009Q1

REPORT INFORMATION
  Report Type: 
  Country: None (occurrence: None)
  Receive Date: 20090109
  Receipt Date: 20081202
  Transmission Date: 20090719
  Serious: Yes (Life-Threatening)
  Sender: FDA-Public Use
  Company Number: GB-PFIZER INC-2008153203

PATIENT

DRUGS (1)
  1. CHAMPIX [Suspect]
     Indication: SMOKING CESSATION THERAPY
     Route: 048
     Dates: start: 20080601, end: 20080601

REACTIONS (6)
  - ANOREXIA [None]
  - CONSTIPATION [None]
  - DIABETES MELLITUS [None]
  - MEGACOLON [None]
  - THIRST [None]
  - WEIGHT DECREASED [None]
